FAERS Safety Report 20059645 (Version 2)
Quarter: 2021Q4

REPORT INFORMATION
  Report Type: Spontaneous
  Country: BR (occurrence: BR)
  Receive Date: 20211111
  Receipt Date: 20211122
  Transmission Date: 20220303
  Serious: Yes (Other)
  Sender: FDA-Public Use
  Company Number: None

PATIENT
  Age: 72 Year
  Sex: Female
  Weight: 54 kg

DRUGS (5)
  1. JANUVIA [Suspect]
     Active Substance: SITAGLIPTIN PHOSPHATE
     Indication: Type 2 diabetes mellitus
     Dosage: 100 MILLIGRAM (MG), 1 DAY
     Route: 048
     Dates: start: 202010
  2. JANUVIA [Suspect]
     Active Substance: SITAGLIPTIN PHOSPHATE
     Dosage: 50 MILLIGRAM (MG), 1 DAY
     Route: 048
     Dates: start: 2016, end: 202010
  3. ATENOLOL [Concomitant]
     Active Substance: ATENOLOL
     Indication: Hypertension
     Dosage: 1 TABLET DAILY
     Route: 048
  4. DIOVAN [Concomitant]
     Active Substance: VALSARTAN
     Indication: Hypertension
     Dosage: 1 TABLET DAILY
     Route: 048
     Dates: start: 202011
  5. DIOVAN [Concomitant]
     Active Substance: VALSARTAN
     Dosage: 2 TABLETS DAILY (1 AT MORNING AND 1 AT NIGHT)
     Dates: end: 202011

REACTIONS (4)
  - Nephrolithiasis [Unknown]
  - Blood pressure abnormal [Not Recovered/Not Resolved]
  - Malaise [Unknown]
  - Blood glucose increased [Unknown]

NARRATIVE: CASE EVENT DATE: 20201001
